FAERS Safety Report 20706908 (Version 2)
Quarter: 2022Q2

REPORT INFORMATION
  Report Type: Report from Study
  Country: KR (occurrence: KR)
  Receive Date: 20220413
  Receipt Date: 20220516
  Transmission Date: 20220721
  Serious: Yes (Hospitalization)
  Sender: FDA-Public Use
  Company Number: KR-DSJP-DSJ-2022-112444AA

PATIENT
  Age: 72 Year
  Sex: Female
  Weight: 63.1 kg

DRUGS (16)
  1. AMLODIPINE\HYDROCHLOROTHIAZIDE\OLMESARTAN [Suspect]
     Active Substance: AMLODIPINE\HYDROCHLOROTHIAZIDE\OLMESARTAN
     Indication: Hypertension
     Dosage: 1 DF, QD (40MG/ 12.5MG/ 5MG)
     Route: 048
     Dates: start: 20220126, end: 20220405
  2. CLAUDEL [Concomitant]
     Indication: Arteriosclerosis
     Dosage: 1 DF, QD (75 MG)
     Route: 048
     Dates: start: 20210928, end: 20220405
  3. CREAZIN [Concomitant]
     Indication: Dyslipidaemia
     Dosage: 1 DF, QD (10 MG)
     Route: 048
     Dates: start: 20200722
  4. LETOPRA [Concomitant]
     Indication: Gastritis prophylaxis
     Dosage: 1 DF, QD (10 MG)
     Route: 048
     Dates: start: 20190321, end: 20220405
  5. AMLODIPINE BESYLATE\OLMESARTAN MEDOXOMIL [Concomitant]
     Active Substance: AMLODIPINE BESYLATE\OLMESARTAN MEDOXOMIL
     Indication: Hypertension
     Dosage: 1 DF, QD (5MG/40 MG)
     Route: 048
     Dates: start: 20180411, end: 20220125
  6. DIACEREIN [Concomitant]
     Active Substance: DIACEREIN
     Indication: Osteoarthritis
     Dosage: 1 DF, BID
     Route: 048
     Dates: start: 20090720
  7. ENTELON [Concomitant]
     Indication: Osteoarthritis
     Dosage: 1 DF, BID
     Route: 048
     Dates: start: 20101104
  8. ACETAMINOPHEN\TRAMADOL [Concomitant]
     Active Substance: ACETAMINOPHEN\TRAMADOL
     Indication: Osteoarthritis
     Dosage: 1 DF, BID
     Route: 048
     Dates: start: 20130521, end: 20220405
  9. SADENIN [Concomitant]
     Indication: Osteoarthritis
     Dosage: 1 DF, BID
     Route: 048
     Dates: start: 20190321, end: 20220403
  10. STILLEN 2X [Concomitant]
     Indication: Gastritis prophylaxis
     Dosage: 1 DF, BID
     Route: 048
     Dates: start: 20190909, end: 20220405
  11. LANTUS [Concomitant]
     Active Substance: INSULIN GLARGINE
     Indication: Diabetes mellitus
     Dosage: 10 IU, QD
     Route: 058
     Dates: start: 20220126
  12. LANTUS [Concomitant]
     Active Substance: INSULIN GLARGINE
     Dosage: 8 IU, QD
     Route: 058
     Dates: start: 20210614, end: 20220125
  13. APIDRA SOLOSTAR [Concomitant]
     Active Substance: INSULIN GLULISINE
     Indication: Diabetes mellitus
     Dosage: 10 IU, TID
     Route: 058
     Dates: start: 20220126
  14. APIDRA SOLOSTAR [Concomitant]
     Active Substance: INSULIN GLULISINE
     Dosage: 8 IU, QD
     Route: 058
     Dates: start: 20210614, end: 20220125
  15. APIDRA SOLOSTAR [Concomitant]
     Active Substance: INSULIN GLULISINE
     Dosage: 9 IU, BID
     Route: 058
     Dates: start: 20211027, end: 20220125
  16. JOINS [Concomitant]
     Indication: Osteoarthritis
     Dosage: 1 DF, BID
     Route: 048
     Dates: start: 20220404

REACTIONS (1)
  - Hyperglycaemia [Recovered/Resolved]

NARRATIVE: CASE EVENT DATE: 20220401
